FAERS Safety Report 21340631 (Version 2)
Quarter: 2022Q3

REPORT INFORMATION
  Report Type: Report from Study
  Country: GT (occurrence: GT)
  Receive Date: 20220916
  Receipt Date: 20220926
  Transmission Date: 20221027
  Serious: Yes (Other)
  Sender: FDA-Public Use
  Company Number: GT-NOVARTISPH-NVSC2022GT207209

PATIENT
  Sex: Male

DRUGS (1)
  1. KESIMPTA [Suspect]
     Active Substance: OFATUMUMAB
     Indication: Multiple sclerosis
     Dosage: 20 MG/KG, QMO
     Route: 058

REACTIONS (6)
  - Soliloquy [Unknown]
  - Speech disorder [Unknown]
  - Disorientation [Unknown]
  - Prosopagnosia [Unknown]
  - Screaming [Unknown]
  - Incorrect dose administered [Unknown]
